FAERS Safety Report 20333458 (Version 1)
Quarter: 2022Q1

REPORT INFORMATION
  Report Type: Spontaneous
  Country: IT (occurrence: None)
  Receive Date: 20220113
  Receipt Date: 20220113
  Transmission Date: 20220423
  Serious: Yes (Hospitalization)
  Sender: FDA-Public Use
  Company Number: IT-Merck Healthcare KGaA-9278329

PATIENT
  Age: 53 Year
  Sex: Female

DRUGS (2)
  1. EUTHYROX [Suspect]
     Active Substance: LEVOTHYROXINE SODIUM
     Indication: Product used for unknown indication
     Route: 048
     Dates: start: 20210906, end: 2021
  2. EUTHYROX [Suspect]
     Active Substance: LEVOTHYROXINE SODIUM
     Dosage: QUARTER OF THE 125 MCG
     Route: 048
     Dates: start: 2021

REACTIONS (5)
  - Panic attack [Unknown]
  - Dyspnoea [Unknown]
  - Dizziness [Unknown]
  - Blood pressure increased [Unknown]
  - Tachycardia [Unknown]

NARRATIVE: CASE EVENT DATE: 20210906
